FAERS Safety Report 6572837-4 (Version None)
Quarter: 2010Q1

REPORT INFORMATION
  Report Type: 
  Country: None (occurrence: None)
  Receive Date: 20100205
  Receipt Date: 20100118
  Transmission Date: 20100710
  Serious: Yes (Hospitalization, Other)
  Sender: FDA-Public Use
  Company Number: DE-ELI_LILLY_AND_COMPANY-DE201002001666

PATIENT
  Age: 81 Year
  Sex: Female

DRUGS (2)
  1. RALOXIFENE HYDROCHLORIDE [Suspect]
     Indication: OSTEOPOROSIS
     Dosage: 60 MG, UNK
  2. ANTIDEPRESSANTS [Concomitant]

REACTIONS (1)
  - BREAST CANCER [None]
